FAERS Safety Report 13399870 (Version 1)
Quarter: 2017Q2

REPORT INFORMATION
  Report Type: Spontaneous
  Country: US (occurrence: US)
  Receive Date: 20170404
  Receipt Date: 20170404
  Transmission Date: 20170830
  Serious: Yes (Other)
  Sender: FDA-Public Use
  Company Number: None

PATIENT
  Age: 64 Year
  Sex: Female
  Weight: 76.5 kg

DRUGS (8)
  1. OXCARBAZEPINE. [Suspect]
     Active Substance: OXCARBAZEPINE
     Indication: SEIZURE
     Dosage: ?          QUANTITY:1 TABLET(S);?
     Route: 048
     Dates: start: 20151222
  2. BIOTIN [Concomitant]
     Active Substance: BIOTIN
  3. ROGAINE [Concomitant]
     Active Substance: MINOXIDIL
  4. CALCIUM [Concomitant]
     Active Substance: CALCIUM
  5. CRESTOR [Concomitant]
     Active Substance: ROSUVASTATIN CALCIUM
  6. BABY ASPIRIN [Concomitant]
     Active Substance: ASPIRIN
  7. CLARITIN [Concomitant]
     Active Substance: LORATADINE
  8. VITAMIN D3 [Concomitant]
     Active Substance: CHOLECALCIFEROL

REACTIONS (2)
  - Speech disorder [None]
  - Aphasia [None]

NARRATIVE: CASE EVENT DATE: 20170215
